FAERS Safety Report 13250554 (Version 3)
Quarter: 2018Q4

REPORT INFORMATION
  Report Type: Spontaneous
  Country: US (occurrence: US)
  Receive Date: 20170219
  Receipt Date: 20181218
  Transmission Date: 20190204
  Serious: Yes (Other)
  Sender: FDA-Public Use
  Company Number: US-LUNDBECK-DKLU2022825

PATIENT
  Sex: Male

DRUGS (2)
  1. NORTHERA [Suspect]
     Active Substance: DROXIDOPA
     Indication: SYNCOPE
  2. NORTHERA [Suspect]
     Active Substance: DROXIDOPA
     Indication: ORTHOSTATIC HYPOTENSION
     Route: 048
     Dates: start: 201510

REACTIONS (7)
  - Surgery [Unknown]
  - Dizziness [Unknown]
  - Hypotension [Unknown]
  - Blood pressure abnormal [Unknown]
  - Somnolence [Unknown]
  - Dysgeusia [Unknown]
  - Headache [Unknown]
